FAERS Safety Report 10575776 (Version 1)
Quarter: 2014Q4

REPORT INFORMATION
  Report Type: Spontaneous
  Country: US (occurrence: None)
  Receive Date: 20141110
  Receipt Date: 20141110
  Transmission Date: 20150529
  Serious: No
  Sender: FDA-Public Use
  Company Number: None

PATIENT
  Age: 46 Year
  Sex: Female
  Weight: 69.4 kg

DRUGS (16)
  1. ASPIRIN(NSAID)/CAFFEINE [Concomitant]
  2. FLUTICASONE PROPIONATE NASAL SPRAY [Concomitant]
     Active Substance: FLUTICASONE PROPIONATE
  3. TRAMADOL [Concomitant]
     Active Substance: TRAMADOL
  4. LORATADINE. [Concomitant]
     Active Substance: LORATADINE
  5. DULCOLAX LAXATIVE TABLETS(BISACODYL USP) [Concomitant]
  6. BENZOYL PEROXIDE. [Concomitant]
     Active Substance: BENZOYL PEROXIDE
  7. WALGREENS EXTRA STRENGTH RELIEF [Concomitant]
  8. VITAMIN TABLETS [Concomitant]
  9. CLINDAMYCIN [Concomitant]
     Active Substance: CLINDAMYCIN\CLINDAMYCIN PHOSPHATE
  10. ZICAM COLD REMEDY [Concomitant]
     Active Substance: ZINC ACETATE\ZINC GLUCONATE
  11. ACETAMINOPHEN. [Concomitant]
     Active Substance: ACETAMINOPHEN
  12. MONTELUKAST [Concomitant]
     Active Substance: MONTELUKAST SODIUM
  13. RIZATRIPTAN [Suspect]
     Active Substance: RIZATRIPTAN
     Indication: MIGRAINE
     Dosage: DAILY AS NEEDED
     Route: 048
     Dates: start: 20140408, end: 20140925
  14. SPRING VALLEY TIME RELEASE B-50 COMPLEX VITAMIN TABLET [Concomitant]
  15. TRIAMCINOLONE ACETONIDE CREAM [Concomitant]
  16. ACYCLOVIR. [Concomitant]
     Active Substance: ACYCLOVIR

REACTIONS (2)
  - Malaise [None]
  - Nausea [None]

NARRATIVE: CASE EVENT DATE: 20140716
